FAERS Safety Report 25616275 (Version 2)
Quarter: 2025Q3

REPORT INFORMATION
  Report Type: Spontaneous
  Country: GB (occurrence: GB)
  Receive Date: 20250729
  Receipt Date: 20250730
  Transmission Date: 20251020
  Serious: Yes (Other)
  Sender: REGENERON
  Company Number: GB-BAYER-2025A099999

PATIENT
  Age: 55 Year
  Sex: Male

DRUGS (2)
  1. EYLEA [Suspect]
     Active Substance: AFLIBERCEPT
     Indication: Retinal vein occlusion
     Dates: start: 20250206, end: 20250206
  2. EYLEA [Suspect]
     Active Substance: AFLIBERCEPT
     Dates: start: 20250512

REACTIONS (6)
  - Blindness [Recovered/Resolved]
  - Uveitis [Unknown]
  - Eye inflammation [Unknown]
  - Photophobia [Unknown]
  - Eye pain [Unknown]
  - Anterior chamber cell [Unknown]

NARRATIVE: CASE EVENT DATE: 20250314
